FAERS Safety Report 10020664 (Version 1)
Quarter: 2013Q4

REPORT INFORMATION
  Report Type: Spontaneous
  Country: US (occurrence: None)
  Receive Date: 20131125
  Receipt Date: 20131125
  Transmission Date: 20140711
  Serious: Yes (Hospitalization)
  Sender: FDA-Public Use
  Company Number: AUR-APL-2013-09375

PATIENT
  Age: 3 Year
  Sex: Male

DRUGS (2)
  1. SEMISODIUM VALPROATE [Suspect]
     Indication: EPILEPSY
  2. PHENYTOIN [Suspect]
     Indication: EPILEPSY

REACTIONS (3)
  - Immune thrombocytopenic purpura [None]
  - Epidermolysis bullosa [None]
  - Acquired epidermolysis bullosa [None]
